FAERS Safety Report 8199151-8 (Version None)
Quarter: 2012Q1

REPORT INFORMATION
  Report Type: 
  Country: None (occurrence: None)
  Receive Date: 20120309
  Receipt Date: 20120306
  Transmission Date: 20120608
  Serious: No
  Sender: FDA-Public Use
  Company Number: US-PFIZER INC-2012060393

PATIENT
  Sex: Female
  Weight: 177 kg

DRUGS (9)
  1. AMITIZA [Concomitant]
     Dosage: 8 UG, UNK
  2. PRAVASTATIN [Concomitant]
     Dosage: 20 MG, UNK
  3. PRILOSEC [Concomitant]
     Dosage: 20 MG, UNK
  4. LISINOPRIL [Suspect]
     Dosage: UNK
  5. HYDROCHLOROTHIAZIDE [Concomitant]
     Dosage: UNK
  6. HYDROCODONE [Concomitant]
     Dosage: UNK
  7. CELEBREX [Suspect]
     Indication: ARTHRITIS
     Dosage: 200 MG, 2X/DAY
     Route: 048
     Dates: end: 20091201
  8. ATENOLOL [Concomitant]
     Dosage: 25 MG, 1X/DAY
  9. FENOFIBRATE [Concomitant]
     Dosage: 160 MG, UNK

REACTIONS (2)
  - ARTHROPATHY [None]
  - RENAL DISORDER [None]
